FAERS Safety Report 14665157 (Version 1)
Quarter: 2018Q1

REPORT INFORMATION
  Report Type: Spontaneous
  Country: US (occurrence: US)
  Receive Date: 20180320
  Receipt Date: 20180320
  Transmission Date: 20180509
  Serious: No
  Sender: FDA-Public Use
  Company Number: None

PATIENT
  Sex: Female

DRUGS (2)
  1. STIVARGA [Suspect]
     Active Substance: REGORAFENIB
     Indication: COLON CANCER
     Dosage: 160MG DAILY X21 DAYS OF 28 DAY CYCLE PO
     Route: 048
     Dates: start: 20180214
  2. STIVARGA [Suspect]
     Active Substance: REGORAFENIB
     Indication: METASTASES TO LIVER
     Dosage: 160MG DAILY X21 DAYS OF 28 DAY CYCLE PO
     Route: 048
     Dates: start: 20180214

REACTIONS (1)
  - Rash [None]
